FAERS Safety Report 9249466 (Version 1)
Quarter: 2013Q2

REPORT INFORMATION
  Report Type: Spontaneous
  Country: US (occurrence: US)
  Receive Date: 20130423
  Receipt Date: 20130423
  Transmission Date: 20140414
  Serious: No
  Sender: FDA-Public Use
  Company Number: US-FOUGERA-2012FO001351

PATIENT
  Age: 83 Year
  Sex: Female
  Weight: 41.73 kg

DRUGS (2)
  1. DESONIDE [Suspect]
     Indication: ERYTHEMA
     Route: 061
     Dates: start: 20121011, end: 20121012
  2. DESONIDE [Suspect]
     Indication: EXCORIATION
     Route: 061
     Dates: start: 20121011, end: 20121012

REACTIONS (3)
  - Off label use [Recovered/Resolved]
  - Erythema [Recovering/Resolving]
  - Condition aggravated [Recovering/Resolving]
